FAERS Safety Report 7960397-2 (Version None)
Quarter: 2011Q4

REPORT INFORMATION
  Report Type: 
  Country: None (occurrence: None)
  Receive Date: 20111206
  Receipt Date: 20111205
  Transmission Date: 20120403
  Serious: Yes (Death, Hospitalization)
  Sender: FDA-Public Use
  Company Number: US-ROXANE LABORATORIES, INC.-2011-RO-01743RO

PATIENT
  Sex: Male

DRUGS (2)
  1. LORAZEPAM INTENSOL [Suspect]
     Indication: CONVULSION
  2. LORAZEPAM [Suspect]
     Indication: CONVULSION
     Route: 042

REACTIONS (2)
  - CONVULSION [None]
  - DEATH [None]
